FAERS Safety Report 5912873-1 (Version None)
Quarter: 2008Q4

REPORT INFORMATION
  Report Type: 
  Country: None (occurrence: None)
  Receive Date: 20081003
  Receipt Date: 20080918
  Transmission Date: 20090506
  Serious: Yes (Hospitalization)
  Sender: FDA-Public Use
  Company Number: DSJ-2008-11462

PATIENT
  Age: 67 Year
  Sex: Male

DRUGS (3)
  1. OLEMTEC (OLMESARTAN MEDOXOMIL) (TABLET) (OLMESARTAN MEDOXOMIL) [Suspect]
     Indication: DIABETIC NEPHROPATHY
     Dosage: 20 MG PER ORAL
     Route: 048
     Dates: start: 20080801, end: 20080901
  2. AMARYL [Suspect]
     Dosage: 1 MG (1 MG,1 IN 1 D), UNKNOWN
  3. ADALAT [Suspect]
     Dosage: 40 MG (20 MG, 2 IN 1 D), UNKNOWN

REACTIONS (1)
  - TOXIC EPIDERMAL NECROLYSIS [None]
